FAERS Safety Report 5036351-X (Version None)
Quarter: 2006Q2

REPORT INFORMATION
  Report Type: 
  Country: None (occurrence: None)
  Receive Date: 20060601
  Receipt Date: 20060203
  Transmission Date: 20061013
  Serious: No
  Sender: FDA-Public Use
  Company Number: 2006PV008171

PATIENT
  Age: 63 Year
  Sex: Male
  Weight: 97.5234 kg

DRUGS (6)
  1. BYETTA [Suspect]
     Indication: DIABETES MELLITUS NON-INSULIN-DEPENDENT
     Dosage: 5 MCG;BID;SC
     Route: 058
     Dates: start: 20060119
  2. MICRONASE [Concomitant]
  3. PRECOSE [Concomitant]
  4. NORVASC [Concomitant]
  5. CORGARD [Concomitant]
  6. LASIX [Concomitant]

REACTIONS (2)
  - BLOOD PRESSURE DECREASED [None]
  - DRUG INEFFECTIVE [None]
